FAERS Safety Report 10185897 (Version 2)
Quarter: 2014Q3

REPORT INFORMATION
  Report Type: Report from Study
  Country: US (occurrence: US)
  Receive Date: 20140521
  Receipt Date: 20140815
  Transmission Date: 20150326
  Serious: Yes (Hospitalization, Other)
  Sender: FDA-Public Use
  Company Number: US-ACTELION-A-NJ2014-98983

PATIENT
  Age: 55 Year
  Sex: Female
  Weight: 73.47 kg

DRUGS (17)
  1. NEOMYCIN [Concomitant]
     Active Substance: NEOMYCIN
  2. COMBIVENT [Concomitant]
     Active Substance: ALBUTEROL SULFATE\IPRATROPIUM BROMIDE
  3. LASIX [Concomitant]
     Active Substance: FUROSEMIDE
  4. HYDROCHLOROTHIAZIDE. [Concomitant]
     Active Substance: HYDROCHLOROTHIAZIDE
  5. PLAVIX [Concomitant]
     Active Substance: CLOPIDOGREL BISULFATE
  6. MACITENTAN [Suspect]
     Active Substance: MACITENTAN
     Dosage: 10 MG, QD
     Route: 048
     Dates: start: 2014
  7. COUMADIN [Suspect]
     Active Substance: WARFARIN SODIUM
     Indication: PRODUCT USED FOR UNKNOWN INDICATION
     Dosage: UNK
     Route: 048
     Dates: start: 201403
  8. LISINOPRIL. [Concomitant]
     Active Substance: LISINOPRIL
  9. FLUOXETINE [Concomitant]
     Active Substance: FLUOXETINE\FLUOXETINE HYDROCHLORIDE
  10. NOVOLIN [Concomitant]
     Active Substance: INSULIN HUMAN
  11. MACITENTAN [Suspect]
     Active Substance: MACITENTAN
     Indication: COR PULMONALE CHRONIC
     Dosage: 10 MG, QD
     Route: 048
     Dates: start: 20140405, end: 201404
  12. FENTANYL. [Concomitant]
     Active Substance: FENTANYL
  13. HUMULIN MIX [Concomitant]
  14. KOMBIGLYZE XR [Concomitant]
     Active Substance: METFORMIN HYDROCHLORIDE\SAXAGLIPTIN HYDROCHLORIDE
  15. AMILORIDE [Concomitant]
     Active Substance: AMILORIDE
  16. TYVASO [Concomitant]
     Active Substance: TREPROSTINIL
  17. MORPHINE [Concomitant]
     Active Substance: MORPHINE

REACTIONS (7)
  - Gastrointestinal haemorrhage [Recovered/Resolved]
  - Weight increased [Recovering/Resolving]
  - Hypotension [Unknown]
  - Decreased appetite [Unknown]
  - Oedema [Unknown]
  - Fluid retention [Recovering/Resolving]
  - Dyspnoea [Unknown]

NARRATIVE: CASE EVENT DATE: 20140417
